FAERS Safety Report 18924236 (Version 1)
Quarter: 2021Q1

REPORT INFORMATION
  Report Type: Spontaneous
  Country: US (occurrence: US)
  Receive Date: 20210222
  Receipt Date: 20210222
  Transmission Date: 20210420
  Serious: Yes (Other)
  Sender: FDA-Public Use
  Company Number: US-BAYER-2021-057977

PATIENT
  Age: 19 Year
  Sex: Male

DRUGS (1)
  1. KOGENATE FS [Suspect]
     Active Substance: ANTIHEMOPHILIC FACTOR, HUMAN RECOMBINANT
     Dosage: 1000 IU
     Route: 042

REACTIONS (3)
  - Haemorrhage [None]
  - Haemarthrosis [None]
  - Muscle contusion [None]

NARRATIVE: CASE EVENT DATE: 202101
